FAERS Safety Report 23283452 (Version 4)
Quarter: 2023Q4

REPORT INFORMATION
  Report Type: Spontaneous
  Country: US (occurrence: US)
  Receive Date: 20231211
  Receipt Date: 20231227
  Transmission Date: 20240110
  Serious: Yes (Other)
  Sender: FDA-Public Use
  Company Number: US-MLMSERVICE-20231128-4695077-1

PATIENT
  Age: 50 Year
  Sex: Female

DRUGS (1)
  1. TRIAMCINOLONE ACETONIDE [Suspect]
     Active Substance: TRIAMCINOLONE ACETONIDE
     Indication: Bursitis
     Dosage: 80 MG, INJECTION
     Route: 065

REACTIONS (5)
  - Soft tissue atrophy [Recovering/Resolving]
  - Cutaneous contour deformity [Recovering/Resolving]
  - Injection site atrophy [Recovering/Resolving]
  - Skin atrophy [Recovering/Resolving]
  - Injection site discomfort [Recovering/Resolving]
